FAERS Safety Report 5134482-7 (Version None)
Quarter: 2006Q4

REPORT INFORMATION
  Report Type: 
  Country: None (occurrence: None)
  Receive Date: 20061019
  Receipt Date: 20060619
  Transmission Date: 20070319
  Serious: Yes (Other)
  Sender: FDA-Public Use
  Company Number: 2006027316

PATIENT
  Age: 59 Year
  Sex: Male

DRUGS (4)
  1. BEXTRA [Suspect]
     Indication: ILL-DEFINED DISORDER
  2. ZIAC [Concomitant]
  3. LOTREL [Concomitant]
  4. LOPID [Concomitant]

REACTIONS (2)
  - DRUG HYPERSENSITIVITY [None]
  - POST PROCEDURAL COMPLICATION [None]
